FAERS Safety Report 5381104-6 (Version None)
Quarter: 2007Q3

REPORT INFORMATION
  Report Type: 
  Country: None (occurrence: None)
  Receive Date: 20070706
  Receipt Date: 20070626
  Transmission Date: 20080115
  Serious: Yes (Hospitalization, Other)
  Sender: FDA-Public Use
  Company Number: US-SHR-US-2006-036757

PATIENT
  Age: 31 Year
  Sex: Female

DRUGS (3)
  1. CAMPATH [Suspect]
     Dosage: 24 MG, 1X/DAY
     Route: 042
     Dates: start: 20040105, end: 20040109
  2. CAMPATH [Suspect]
     Dosage: 24 MG, 1X/DAY
     Route: 042
     Dates: start: 20050103, end: 20050105
  3. MIRCETTE [Concomitant]
     Dates: start: 20030901, end: 20060701

REACTIONS (1)
  - ABORTION SPONTANEOUS [None]
